FAERS Safety Report 6543966-6 (Version None)
Quarter: 2010Q1

REPORT INFORMATION
  Report Type: 
  Country: None (occurrence: None)
  Receive Date: 20100120
  Receipt Date: 20100108
  Transmission Date: 20100710
  Serious: Yes (Other)
  Sender: FDA-Public Use
  Company Number: PHHY2010DE01339

PATIENT
  Age: 77 Year
  Sex: Male

DRUGS (1)
  1. PROVAS COMP [Suspect]
     Dosage: 160/12.5 MG

REACTIONS (1)
  - POLYNEUROPATHY [None]
